FAERS Safety Report 10311638 (Version 2)
Quarter: 2014Q3

REPORT INFORMATION
  Report Type: Spontaneous
  Country: IT (occurrence: IT)
  Receive Date: 20140717
  Receipt Date: 20140718
  Transmission Date: 20150326
  Serious: Yes (Other)
  Sender: FDA-Public Use
  Company Number: PHHY2014IT086908

PATIENT
  Age: 26 Year
  Sex: Female
  Weight: 60 kg

DRUGS (3)
  1. TOPAMAX [Suspect]
     Active Substance: TOPIRAMATE
     Dosage: 250 MG, UNK
     Route: 048
     Dates: start: 20140622
  2. TAVOR [Suspect]
     Active Substance: LORAZEPAM
     Dosage: 7.5 MG, UNK
     Route: 048
     Dates: start: 20140622
  3. SERTRALINE [Suspect]
     Active Substance: SERTRALINE HYDROCHLORIDE
     Dosage: 750 MG, UNK
     Route: 048
     Dates: start: 20140622, end: 20140622

REACTIONS (4)
  - Self injurious behaviour [Unknown]
  - Drug abuse [Unknown]
  - Overdose [Unknown]
  - Psychomotor retardation [Unknown]

NARRATIVE: CASE EVENT DATE: 20140622
